FAERS Safety Report 20685696 (Version 1)
Quarter: 2022Q2

REPORT INFORMATION
  Report Type: Spontaneous
  Country: US (occurrence: US)
  Receive Date: 20220407
  Receipt Date: 20220407
  Transmission Date: 20220720
  Serious: No
  Sender: FDA-Public Use
  Company Number: US-PFIZER INC-2021684200

PATIENT
  Age: 65 Year
  Sex: Male
  Weight: 90.72 kg

DRUGS (1)
  1. LYRICA [Suspect]
     Active Substance: PREGABALIN
     Indication: Neuropathy peripheral
     Dosage: 300 MG, 3X/DAY (TAKE ONE THREE TIME DAILY BY MOUTH)
     Route: 048
     Dates: start: 201901

REACTIONS (2)
  - Drug screen false positive [Unknown]
  - Overdose [Unknown]
